FAERS Safety Report 9584919 (Version 1)
Quarter: 2013Q4

REPORT INFORMATION
  Report Type: Spontaneous
  Country: US (occurrence: US)
  Receive Date: 20131002
  Receipt Date: 20131002
  Transmission Date: 20140711
  Serious: No
  Sender: FDA-Public Use
  Company Number: US-AMGEN-USASP2013056487

PATIENT
  Age: 55 Year
  Sex: Female
  Weight: 86.17 kg

DRUGS (9)
  1. ENBREL [Suspect]
     Indication: RHEUMATOID ARTHRITIS
     Dosage: 50 MG, QWK
     Route: 058
  2. ADVAIR [Concomitant]
     Dosage: UNK, DISKU AER 500/50
  3. LEVOTHYROXIN [Concomitant]
     Dosage: 200 MUG, UNK
  4. BIOTIN [Concomitant]
     Dosage: 5 MG, UNK
  5. OMEPRAZOLE [Concomitant]
     Dosage: 40 MG, UNK
  6. PROBIOTIC                          /06395501/ [Concomitant]
     Dosage: UNK
  7. B12                                /00056201/ [Concomitant]
     Dosage: 1 MG, UNK, ACTIVE CHW
  8. SPIRIVA [Concomitant]
     Dosage: UNK, HANDIHLR
  9. ALBUTEROL                          /00139501/ [Concomitant]
     Dosage: UNK, AER 90 MCG RF

REACTIONS (1)
  - Fatigue [Unknown]
